FAERS Safety Report 7666055-6 (Version None)
Quarter: 2011Q3

REPORT INFORMATION
  Report Type: 
  Country: None (occurrence: None)
  Receive Date: 20110806
  Receipt Date: 20110526
  Transmission Date: 20111222
  Serious: No
  Sender: FDA-Public Use
  Company Number: US-ABBOTT-11P-163-0728668-00

PATIENT
  Sex: Male
  Weight: 93.978 kg

DRUGS (4)
  1. ENALAPRIL MALEATE [Concomitant]
     Indication: PRODUCT USED FOR UNKNOWN INDICATION
  2. ASPIRIN [Concomitant]
     Indication: PRODUCT USED FOR UNKNOWN INDICATION
  3. ASPIRIN [Concomitant]
     Indication: PRODUCT USED FOR UNKNOWN INDICATION
     Dates: start: 20110525
  4. NIASPAN [Suspect]
     Indication: VASCULAR OCCLUSION
     Dosage: AT BEDTIME
     Dates: start: 20110525

REACTIONS (3)
  - ASTHENIA [None]
  - SOMNOLENCE [None]
  - FATIGUE [None]
